FAERS Safety Report 23379705 (Version 1)
Quarter: 2024Q1

REPORT INFORMATION
  Report Type: Spontaneous
  Country: KR (occurrence: KR)
  Receive Date: 20240108
  Receipt Date: 20240108
  Transmission Date: 20240410
  Serious: Yes (Other)
  Sender: FDA-Public Use
  Company Number: KR-BAYER-2024A002181

PATIENT
  Sex: Female

DRUGS (1)
  1. XARELTO [Suspect]
     Active Substance: RIVAROXABAN
     Indication: Product used for unknown indication
     Route: 048

REACTIONS (6)
  - Hypoacusis [Unknown]
  - Headache [Unknown]
  - Dysarthria [Unknown]
  - Blood pressure fluctuation [Unknown]
  - Dizziness [Unknown]
  - Tachycardia [Unknown]
